FAERS Safety Report 6189223-1 (Version None)
Quarter: 2009Q2

REPORT INFORMATION
  Report Type: 
  Country: None (occurrence: None)
  Receive Date: 20090513
  Receipt Date: 20090501
  Transmission Date: 20091009
  Serious: No
  Sender: FDA-Public Use
  Company Number: US-ELI_LILLY_AND_COMPANY-US200905000752

PATIENT
  Age: 45 Year
  Sex: Male

DRUGS (2)
  1. ZYPREXA [Suspect]
     Dosage: 20 MG, UNK
     Dates: start: 20060101, end: 20060101
  2. ZYPREXA [Suspect]
     Dosage: 30 MG, UNK
     Dates: start: 20060101, end: 20060101

REACTIONS (2)
  - LEUKOPENIA [None]
  - OVERDOSE [None]
